FAERS Safety Report 7604542-7 (Version None)
Quarter: 2011Q3

REPORT INFORMATION
  Report Type: 
  Country: None (occurrence: None)
  Receive Date: 20110712
  Receipt Date: 20110704
  Transmission Date: 20111222
  Serious: Yes (Other)
  Sender: FDA-Public Use
  Company Number: FR-ABBOTT-11P-056-0836287-00

PATIENT
  Sex: Female

DRUGS (6)
  1. TRUVADA [Suspect]
     Indication: PRODUCT USED FOR UNKNOWN INDICATION
  2. NORVIR [Suspect]
     Indication: HIV INFECTION
     Route: 048
     Dates: start: 20021115, end: 20110201
  3. NORVIR [Suspect]
     Dates: start: 20110201, end: 20110308
  4. TELZIR [Suspect]
     Dates: start: 20110201, end: 20110308
  5. TELZIR [Suspect]
     Indication: HIV INFECTION
     Route: 048
     Dates: start: 20040922, end: 20110201
  6. VIRAMUNE [Suspect]
     Indication: PRODUCT USED FOR UNKNOWN INDICATION

REACTIONS (7)
  - ANTISOCIAL BEHAVIOUR [None]
  - NASOPHARYNGITIS [None]
  - DRUG ERUPTION [None]
  - ODYNOPHAGIA [None]
  - COUGH [None]
  - COGNITIVE DISORDER [None]
  - SUICIDAL IDEATION [None]
